FAERS Safety Report 9412147 (Version 1)
Quarter: 2013Q3

REPORT INFORMATION
  Report Type: Spontaneous
  Country: US (occurrence: US)
  Receive Date: 20130722
  Receipt Date: 20130722
  Transmission Date: 20140515
  Serious: Yes (Death, Hospitalization)
  Sender: FDA-Public Use
  Company Number: US-JNJFOC-NSADSS2002033697

PATIENT
  Age: 74 Year
  Sex: Male
  Weight: 69.4 kg

DRUGS (12)
  1. REMICADE [Suspect]
     Indication: RHEUMATOID ARTHRITIS
     Route: 041
     Dates: start: 20020708, end: 20020708
  2. REMICADE [Suspect]
     Indication: RHEUMATOID ARTHRITIS
     Dosage: 3MG/KG
     Route: 041
     Dates: start: 20020618, end: 20020618
  3. ARAVA [Suspect]
     Indication: RHEUMATOID ARTHRITIS
  4. ARAVA [Suspect]
     Indication: RHEUMATOID ARTHRITIS
     Dosage: 1 YEAR
  5. PROCARDIA XL [Concomitant]
     Indication: HYPERTENSION
  6. DIOVAN HCT [Concomitant]
  7. METHOTREXATE [Concomitant]
  8. PREDNISONE [Concomitant]
     Indication: RHEUMATOID ARTHRITIS
     Dates: start: 2002
  9. PREDNISONE [Concomitant]
     Indication: RHEUMATOID ARTHRITIS
     Dosage: 1 YEAR; 2.5 MG TWICE DAILY
  10. FOLIC ACID [Concomitant]
  11. NEXIUM [Concomitant]
  12. ADVIL [Concomitant]

REACTIONS (13)
  - Dyspnoea [Unknown]
  - Meningitis listeria [Recovered/Resolved]
  - Mouth ulceration [Recovered/Resolved]
  - Anaemia [Unknown]
  - Renal failure chronic [Unknown]
  - Hypertension [Recovered/Resolved]
  - Death [Fatal]
  - Chronic obstructive pulmonary disease [Unknown]
  - Oedema [Recovered/Resolved]
  - Prostatism [Unknown]
  - Nocturia [Unknown]
  - Nephrolithiasis [Unknown]
  - Rheumatoid arthritis [Unknown]
